FAERS Safety Report 11943610 (Version 1)
Quarter: 2016Q1

REPORT INFORMATION
  Report Type: Spontaneous
  Country: US (occurrence: US)
  Receive Date: 20160125
  Receipt Date: 20160125
  Transmission Date: 20160526
  Serious: No
  Sender: FDA-Public Use
  Company Number: US-UNITED THERAPEUTICS-UNT-2015-012441

PATIENT
  Age: 71 Year
  Sex: Female
  Weight: 79.37 kg

DRUGS (4)
  1. TYVASO [Suspect]
     Active Substance: TREPROSTINIL
     Indication: PULMONARY HYPERTENSION
     Dosage: 18-54 MICROGRAMS, QID
     Dates: start: 20150318
  2. TYVASO [Suspect]
     Active Substance: TREPROSTINIL
     Dosage: 72-90 MICROGRAMS, QID
     Dates: start: 20150318
  3. REMODULIN [Suspect]
     Active Substance: TREPROSTINIL
     Indication: PULMONARY HYPERTENSION
     Dosage: 0.002 ?G/KG/MIN, CONTINUING
     Route: 058
     Dates: start: 20150825
  4. REMODULIN [Suspect]
     Active Substance: TREPROSTINIL
     Dosage: 0.012 ?G/KG/MIN, CONTINUING
     Route: 058
     Dates: start: 20150825

REACTIONS (6)
  - Myalgia [Unknown]
  - Infusion site erythema [Recovered/Resolved]
  - Diarrhoea [Unknown]
  - Infusion site pain [Recovered/Resolved]
  - Dysphonia [Recovered/Resolved]
  - Infusion site oedema [Unknown]

NARRATIVE: CASE EVENT DATE: 201509
